FAERS Safety Report 5800521-0 (Version None)
Quarter: 2008Q3

REPORT INFORMATION
  Report Type: 
  Country: None (occurrence: None)
  Receive Date: 20080702
  Receipt Date: 20080702
  Transmission Date: 20090109
  Serious: Yes (Other)
  Sender: FDA-Public Use
  Company Number: None

PATIENT
  Age: 32 Year
  Sex: Female
  Weight: 78.0187 kg

DRUGS (1)
  1. MIRENA [Suspect]
     Indication: CONTRACEPTION
     Dates: start: 20080213, end: 20080522

REACTIONS (9)
  - ABDOMINAL DISTENSION [None]
  - ALOPECIA [None]
  - BACK PAIN [None]
  - DEPRESSION [None]
  - MENORRHAGIA [None]
  - MUSCLE SPASMS [None]
  - PANIC ATTACK [None]
  - VISUAL IMPAIRMENT [None]
  - WEIGHT INCREASED [None]
